FAERS Safety Report 5041748-8 (Version None)
Quarter: 2006Q2

REPORT INFORMATION
  Report Type: 
  Country: None (occurrence: None)
  Receive Date: 20060630
  Receipt Date: 20060619
  Transmission Date: 20061013
  Serious: Yes (Life-Threatening, Other)
  Sender: FDA-Public Use
  Company Number: 2006075869

PATIENT
  Age: 57 Year
  Sex: Female
  Weight: 68.0396 kg

DRUGS (7)
  1. LIPITOR [Suspect]
     Indication: BLOOD CHOLESTEROL INCREASED
     Dosage: 40 MG
     Dates: end: 20060612
  2. LORCET PLUS (HYDROCODONE BITARTRATE, PARACETAMOL) [Concomitant]
  3. PENTOXIFYLLINE [Concomitant]
  4. ASPIRIN [Concomitant]
  5. PLAVIX [Concomitant]
  6. INSULIN [Concomitant]
  7. GLUCOPHAGE [Concomitant]

REACTIONS (10)
  - BLOOD GLUCOSE DECREASED [None]
  - BRAIN NEOPLASM [None]
  - LUNG NEOPLASM MALIGNANT [None]
  - MALIGNANT MELANOMA [None]
  - MOVEMENT DISORDER [None]
  - MYALGIA [None]
  - PAIN IN EXTREMITY [None]
  - SKIN GRAFT [None]
  - STOMACH DISCOMFORT [None]
  - VISUAL DISTURBANCE [None]
